FAERS Safety Report 16444126 (Version 1)
Quarter: 2019Q2

REPORT INFORMATION
  Report Type: Spontaneous
  Country: FR (occurrence: FR)
  Receive Date: 20190618
  Receipt Date: 20190618
  Transmission Date: 20190711
  Serious: Yes (Life-Threatening, Hospitalization)
  Sender: FDA-Public Use
  Company Number: FR-BIOGEN-2019BI00752459

PATIENT
  Age: 41 Year
  Sex: Female
  Weight: 52 kg

DRUGS (1)
  1. TYSABRI [Suspect]
     Active Substance: NATALIZUMAB
     Indication: RELAPSING-REMITTING MULTIPLE SCLEROSIS
     Route: 041
     Dates: start: 20180802, end: 20190122

REACTIONS (2)
  - Acute respiratory distress syndrome [Recovered/Resolved]
  - Pneumonia legionella [Recovered/Resolved]

NARRATIVE: CASE EVENT DATE: 201901
